FAERS Safety Report 17511115 (Version 1)
Quarter: 2020Q1

REPORT INFORMATION
  Report Type: Spontaneous
  Country: US (occurrence: US)
  Receive Date: 20200306
  Receipt Date: 20200306
  Transmission Date: 20200409
  Serious: No
  Sender: FDA-Public Use
  Company Number: US-HARMONY BIOSCIENCES-2020HMY00090

PATIENT
  Age: 60 Year
  Sex: Male

DRUGS (3)
  1. MODAFINIL. [Concomitant]
     Active Substance: MODAFINIL
  2. WAKIX [Suspect]
     Active Substance: PITOLISANT HYDROCHLORIDE
     Indication: NARCOLEPSY
     Dosage: UNK UNK, 1X/DAY
     Dates: start: 20200118, end: 20200124
  3. WAKIX [Suspect]
     Active Substance: PITOLISANT HYDROCHLORIDE
     Dosage: 17.8 MG, 1X/DAY
     Dates: start: 20200125

REACTIONS (4)
  - Therapeutic product effect decreased [Not Recovered/Not Resolved]
  - Feeling abnormal [Not Recovered/Not Resolved]
  - Unevaluable event [Not Recovered/Not Resolved]
  - Confusional state [Not Recovered/Not Resolved]

NARRATIVE: CASE EVENT DATE: 20200129
